FAERS Safety Report 4382219-1 (Version None)
Quarter: 2004Q2

REPORT INFORMATION
  Report Type: 
  Country: None (occurrence: None)
  Receive Date: 20040618
  Receipt Date: 20040618
  Transmission Date: 20050107
  Serious: Yes (Hospitalization)
  Sender: FDA-Public Use
  Company Number: None

PATIENT
  Age: 73 Year
  Sex: Female

DRUGS (8)
  1. TAXOL [Suspect]
     Indication: CARCINOMA
     Dosage: 53.6 MG IV WEEKLY
     Route: 042
     Dates: start: 20040310
  2. CARBOPLATIN [Suspect]
     Indication: CARCINOMA
     Dosage: 75 MG IV WEEKLY
     Route: 042
     Dates: start: 20040310
  3. IFOSFAMIDE [Concomitant]
  4. MESNA [Concomitant]
  5. OXYCODONE [Concomitant]
  6. DECADRON [Concomitant]
  7. COMPAZINE [Concomitant]
  8. LOTRIMIN [Concomitant]

REACTIONS (9)
  - ANOREXIA [None]
  - ASTHENIA [None]
  - CATHETER SITE RELATED REACTION [None]
  - FAILURE TO THRIVE [None]
  - MUCOSAL INFLAMMATION [None]
  - RADIATION SKIN INJURY [None]
  - SKIN DISORDER [None]
  - TREATMENT NONCOMPLIANCE [None]
  - WEIGHT DECREASED [None]
